FAERS Safety Report 9827628 (Version 2)
Quarter: 2014Q1

REPORT INFORMATION
  Report Type: Spontaneous
  Country: US (occurrence: US)
  Receive Date: 20140117
  Receipt Date: 20140219
  Transmission Date: 20141002
  Serious: Yes (Death)
  Sender: FDA-Public Use
  Company Number: US-PFIZER INC-2014013717

PATIENT
  Age: 59 Year
  Sex: Male

DRUGS (1)
  1. CAMPTOSAR [Suspect]
     Indication: OESOPHAGEAL CARCINOMA
     Dosage: 248 MG, UNK
     Dates: start: 20131121

REACTIONS (2)
  - Disease progression [Fatal]
  - Oesophageal carcinoma [Fatal]
